FAERS Safety Report 8531141-5 (Version None)
Quarter: 2012Q3

REPORT INFORMATION
  Report Type: 
  Country: None (occurrence: None)
  Receive Date: 20120723
  Receipt Date: 20120713
  Transmission Date: 20120928
  Serious: Yes (Other)
  Sender: FDA-Public Use
  Company Number: US-BAYER-2011-071080

PATIENT
  Age: 29 Year
  Sex: Female
  Weight: 99.773 kg

DRUGS (2)
  1. COUMADIN [Concomitant]
  2. YAZ [Suspect]
     Indication: CONTRACEPTION
     Dosage: UNK
     Dates: start: 20060901, end: 20090401

REACTIONS (7)
  - ANXIETY [None]
  - ANHEDONIA [None]
  - PSYCHOLOGICAL TRAUMA [None]
  - DEEP VEIN THROMBOSIS [None]
  - PAIN IN EXTREMITY [None]
  - INJURY [None]
  - FEAR OF DISEASE [None]
